FAERS Safety Report 5850810-9 (Version None)
Quarter: 2008Q3

REPORT INFORMATION
  Report Type: 
  Country: None (occurrence: None)
  Receive Date: 20080820
  Receipt Date: 20080811
  Transmission Date: 20090109
  Serious: Yes (Life-Threatening, Other)
  Sender: FDA-Public Use
  Company Number: US-NOVOPROD-276786

PATIENT
  Sex: Male
  Weight: 72.562 kg

DRUGS (6)
  1. NOVOLOG MIX 70/30 [Suspect]
     Indication: INSULIN-REQUIRING TYPE 2 DIABETES MELLITUS
     Dosage: 12 IU, QD
     Route: 058
     Dates: start: 20071130
  2. ACTOS [Concomitant]
     Indication: INSULIN-REQUIRING TYPE 2 DIABETES MELLITUS
     Dosage: 30 MG, QD
     Route: 048
  3. PROSCAR [Concomitant]
     Indication: PROSTATIC DISORDER
     Dosage: 5 MG, QD
     Route: 048
  4. COZAAR [Concomitant]
     Indication: HYPERTENSION
     Dosage: 50 MG, QD
     Route: 048
  5. ASPIRIN 10GR TIMED DISINTEGRATION TAB [Concomitant]
     Dosage: 325 MG, QD
  6. FINASTERIDE [Concomitant]
     Dosage: 10 MG, QD

REACTIONS (1)
  - HYPOGLYCAEMIC UNCONSCIOUSNESS [None]
